FAERS Safety Report 9180111 (Version 1)
Quarter: 2012Q4

REPORT INFORMATION
  Report Type: 
  Country: US (occurrence: US)
  Receive Date: 20121029
  Receipt Date: 20121029
  Transmission Date: 20130627
  Serious: No
  Sender: FDA-Public Use
  Company Number: US-AMGEN-USASP2012053962

PATIENT
  Age: 53 Year
  Sex: Female
  Weight: 90.7 kg

DRUGS (5)
  1. ENBREL [Suspect]
     Indication: PRODUCT USED FOR UNKNOWN INDICATION
     Dosage: 50 mg, qwk
     Route: 058
  2. FLUTICASONE [Concomitant]
     Dosage: 50 mug, UNK
  3. METHOTREXATE [Concomitant]
     Dosage: 2.5 mg, UNK
  4. LISINOPRIL/HCTZ [Concomitant]
     Dosage: 20-12.5
  5. FOLIC ACID [Concomitant]
     Dosage: 1 mg, UNK

REACTIONS (2)
  - Vaginal discharge [Unknown]
  - Fungal infection [Unknown]
